FAERS Safety Report 4408006-3 (Version None)
Quarter: 2004Q3

REPORT INFORMATION
  Report Type: 
  Country: None (occurrence: None)
  Receive Date: 20040721
  Receipt Date: 20040701
  Transmission Date: 20050211
  Serious: Yes (Death, Hospitalization)
  Sender: FDA-Public Use
  Company Number: FR_040704397

PATIENT
  Age: 33 Year
  Sex: Female

DRUGS (4)
  1. XIGRIS [Suspect]
     Indication: SEPSIS
     Dosage: 20 MG
     Dates: start: 20040424, end: 20040426
  2. GENTAMICIN [Concomitant]
  3. FLAGYL(METRONIDAZOLE BENZOATE) [Concomitant]
  4. DALACINE T TOPIC (CLINDAMYCIN PHOSPHATE) [Concomitant]

REACTIONS (13)
  - ACTIVATED PARTIAL THROMBOPLASTIN TIME PROLONGED [None]
  - DEEP VEIN THROMBOSIS [None]
  - DISEASE PROGRESSION [None]
  - FASCIA RELEASE [None]
  - HYPOTHERMIA [None]
  - PERIPHERAL ISCHAEMIA [None]
  - PLATELET COUNT DECREASED [None]
  - PROTHROMBIN TIME PROLONGED [None]
  - PULSE ABSENT [None]
  - RHABDOMYOLYSIS [None]
  - SEPSIS [None]
  - STREPTOCOCCAL INFECTION [None]
  - THROMBOCYTOPENIA [None]
